FAERS Safety Report 9217143 (Version 2)
Quarter: 2013Q2

REPORT INFORMATION
  Report Type: Spontaneous
  Country: US (occurrence: None)
  Receive Date: 20130404
  Receipt Date: 20130411
  Transmission Date: 20140414
  Serious: Yes (Other)
  Sender: FDA-Public Use
  Company Number: USA/USA/13/0028868

PATIENT
  Age: 73 Year
  Sex: Male
  Weight: 95.26 kg

DRUGS (5)
  1. ATORVASTATIN [Suspect]
     Indication: BLOOD CHOLESTEROL INCREASED
     Dosage: 40 MG, 1 IN 1 D, ORAL
     Route: 048
  2. FENOFIBRATE (FENOFIBRATE) (FENOFIBRATE) [Suspect]
     Dosage: 145 MG, 1 IN 1 D, UNKNOWN
     Dates: start: 201212, end: 201303
  3. CLOPIDOGREL BISULFATE (CLOPIDOGREL BISULFATE) [Concomitant]
  4. NADOLOL (NADOLOL) [Concomitant]
  5. ATACAND (CANDESARTAN CILEXETIL) [Concomitant]

REACTIONS (9)
  - Muscular weakness [None]
  - Blood cholesterol decreased [None]
  - Bone cancer metastatic [None]
  - Arthralgia [None]
  - Musculoskeletal pain [None]
  - Neck pain [None]
  - Back pain [None]
  - Pain in extremity [None]
  - Myalgia [None]
